FAERS Safety Report 9423756 (Version 2)
Quarter: 2013Q3

REPORT INFORMATION
  Report Type: Report from Study
  Country: NL (occurrence: NL)
  Receive Date: 20130728
  Receipt Date: 20130819
  Transmission Date: 20140515
  Serious: Yes (Death)
  Sender: FDA-Public Use
  Company Number: PHHY2013NL080035

PATIENT
  Sex: Female

DRUGS (17)
  1. ACLASTA [Suspect]
     Indication: OSTEOPOROSIS
     Dosage: 5 MG, PER YEAR
     Route: 042
     Dates: start: 20111121
  2. ACLASTA [Suspect]
     Dosage: 5 MG, PER YEAR
     Route: 042
     Dates: start: 20121116
  3. FERRO                              /00332001/ [Concomitant]
  4. AMLODIPINE [Concomitant]
  5. ASCAL [Concomitant]
  6. METOCLOPRAMIDE [Concomitant]
  7. ACRIVASTINE [Concomitant]
  8. OMEPRAZOLE [Concomitant]
  9. ATROVENT [Concomitant]
  10. SALBUTAMOL [Concomitant]
  11. SERETIDE [Concomitant]
  12. ACIDO FOLICO [Concomitant]
  13. CALCICHEW D3 [Concomitant]
  14. OXYCODON [Concomitant]
  15. OXAZEPAM [Concomitant]
  16. PARACETAMOL [Concomitant]
  17. MOVICOLON [Concomitant]

REACTIONS (1)
  - Death [Fatal]
